FAERS Safety Report 9718662 (Version 2)
Quarter: 2013Q4

REPORT INFORMATION
  Report Type: Not Available
  Country: US (occurrence: US)
  Receive Date: 20131125
  Receipt Date: 20131125
  Transmission Date: 20140711
  Serious: No
  Sender: FDA-Public Use
  Company Number: US-H. LUNDBECK A/S-DKLU1089097

PATIENT
  Age: 44 Year
  Sex: Male
  Weight: 108 kg

DRUGS (11)
  1. ONFI [Suspect]
     Indication: EPILEPSY
     Dates: start: 201212
  2. ONFI [Suspect]
     Dates: start: 20130108, end: 20130420
  3. FELBATOL [Concomitant]
     Indication: PRODUCT USED FOR UNKNOWN INDICATION
     Route: 048
  4. FELBATOL [Concomitant]
  5. FELBATOL [Concomitant]
  6. CLONAZEPAM [Concomitant]
     Indication: PRODUCT USED FOR UNKNOWN INDICATION
     Route: 048
  7. ZONEGRAN [Concomitant]
     Indication: PRODUCT USED FOR UNKNOWN INDICATION
     Route: 048
  8. ZONEGRAN [Concomitant]
     Route: 048
  9. PROPRANOLOL [Concomitant]
     Indication: PRODUCT USED FOR UNKNOWN INDICATION
     Route: 048
  10. LORAZEPAM [Concomitant]
     Indication: CONVULSION
     Route: 048
  11. DESLORATADINE [Concomitant]
     Indication: SINUS CONGESTION
     Route: 048

REACTIONS (5)
  - Hallucination, auditory [Recovering/Resolving]
  - Agitation [Recovering/Resolving]
  - Fatigue [Recovering/Resolving]
  - Anxiety [Recovering/Resolving]
  - Confusional state [Recovering/Resolving]
